FAERS Safety Report 5595026-9 (Version None)
Quarter: 2008Q1

REPORT INFORMATION
  Report Type: 
  Country: None (occurrence: None)
  Receive Date: 20080117
  Receipt Date: 20080108
  Transmission Date: 20080703
  Serious: Yes (Other)
  Sender: FDA-Public Use
  Company Number: GB-ASTRAZENECA-2008GB00040

PATIENT
  Age: 43 Year
  Sex: Male

DRUGS (2)
  1. ROSUVASTATIN [Suspect]
     Indication: BLOOD CHOLESTEROL INCREASED
     Route: 048
     Dates: start: 20060411
  2. PERINDOPRIL [Concomitant]
     Indication: HYPERTENSION
     Dates: start: 20060104

REACTIONS (1)
  - TENDON RUPTURE [None]
